FAERS Safety Report 20760612 (Version 2)
Quarter: 2022Q2

REPORT INFORMATION
  Report Type: Report from Study
  Country: US (occurrence: US)
  Receive Date: 20220428
  Receipt Date: 20220429
  Transmission Date: 20220721
  Serious: Yes (Other)
  Sender: FDA-Public Use
  Company Number: US-SANOFI-01074372

PATIENT
  Age: 82 Year
  Sex: Male

DRUGS (7)
  1. DUPILUMAB [Suspect]
     Active Substance: DUPILUMAB
     Indication: Dermatitis atopic
     Dosage: 600 MG, 1X
     Route: 058
     Dates: start: 20220412, end: 20220412
  2. AMMONIUM LACTATE [Concomitant]
     Active Substance: AMMONIUM LACTATE
  3. PREDNISONE [Concomitant]
     Active Substance: PREDNISONE
  4. ALLEGRA [LEVOCETIRIZINE DIHYDROCHLORIDE] [Concomitant]
  5. AMLODINE [AMLODIPINE] [Concomitant]
  6. LOSARTAN [Concomitant]
     Active Substance: LOSARTAN
  7. ALLEGRA [FEXOFENADINE HYDROCHLORIDE] [Concomitant]

REACTIONS (3)
  - Deafness [Not Recovered/Not Resolved]
  - Rash [Not Recovered/Not Resolved]
  - Hypersensitivity [Not Recovered/Not Resolved]

NARRATIVE: CASE EVENT DATE: 20220401
